FAERS Safety Report 17166076 (Version 2)
Quarter: 2019Q4

REPORT INFORMATION
  Report Type: Spontaneous
  Country: RO (occurrence: RO)
  Receive Date: 20191217
  Receipt Date: 20191231
  Transmission Date: 20200122
  Serious: Yes (Life-Threatening, Other)
  Sender: FDA-Public Use
  Company Number: RO-SHIRE-RO201937265

PATIENT

DRUGS (3)
  1. FIRAZYR [Suspect]
     Active Substance: ICATIBANT ACETATE
     Indication: HEREDITARY ANGIOEDEMA WITH C1 ESTERASE INHIBITOR DEFICIENCY
     Dosage: 2 MILLILITER
     Route: 058
     Dates: start: 20191001
  2. FIRAZYR [Suspect]
     Active Substance: ICATIBANT ACETATE
     Dosage: 2 UNK1X,
     Route: 058
  3. C1-INHIBITOR, PLASMA DERIVED [Concomitant]
     Indication: HEREDITARY ANGIOEDEMA

REACTIONS (3)
  - Injection site pain [Recovered/Resolved]
  - Injection site erythema [Recovered/Resolved]
  - Laryngeal oedema [Recovered/Resolved]
